FAERS Safety Report 17372761 (Version 3)
Quarter: 2021Q1

REPORT INFORMATION
  Report Type: Spontaneous
  Country: DE (occurrence: DE)
  Receive Date: 20200205
  Receipt Date: 20210125
  Transmission Date: 20210419
  Serious: Yes (Other)
  Sender: FDA-Public Use
  Company Number: DE-GLENMARK PHARMACEUTICALS-2020GMK045866

PATIENT

DRUGS (4)
  1. GLEPARK 0,7 MG TABLETTEN [Suspect]
     Active Substance: PRAMIPEXOLE DIHYDROCHLORIDE
     Dosage: 1 DF, SINGLE
     Route: 065
     Dates: start: 20200123, end: 20200123
  2. GLEPARK 0,7 MG TABLETTEN [Suspect]
     Active Substance: PRAMIPEXOLE DIHYDROCHLORIDE
     Indication: RESTLESS LEGS SYNDROME
     Dosage: UNK
     Route: 065
     Dates: start: 2019, end: 2019
  3. OXYCODONE [Concomitant]
     Active Substance: OXYCODONE
     Indication: RESTLESS LEGS SYNDROME
     Dosage: UNK
     Route: 065
  4. SERTRALINE [Concomitant]
     Active Substance: SERTRALINE HYDROCHLORIDE
     Indication: RESTLESS LEGS SYNDROME
     Dosage: UNK
     Route: 065

REACTIONS (4)
  - Expired product administered [Unknown]
  - Polyneuropathy [Unknown]
  - Parkinson^s disease [Unknown]
  - Intentional product misuse [Unknown]

NARRATIVE: CASE EVENT DATE: 20200123
